FAERS Safety Report 19240285 (Version 2)
Quarter: 2021Q2

REPORT INFORMATION
  Report Type: Spontaneous
  Country: US (occurrence: US)
  Receive Date: 20210511
  Receipt Date: 20210513
  Transmission Date: 20210717
  Serious: Yes (Hospitalization, Other)
  Sender: FDA-Public Use
  Company Number: US-LUPIN PHARMACEUTICALS INC.-2021-06724

PATIENT
  Sex: Male

DRUGS (1)
  1. LANTHANUM CARBONATE CHEWABLE TABLETS, 500 MG [Suspect]
     Active Substance: LANTHANUM CARBONATE
     Indication: PRODUCT USED FOR UNKNOWN INDICATION
     Dosage: UNK
     Route: 048

REACTIONS (7)
  - Product administration error [Unknown]
  - Pain in extremity [Unknown]
  - Tremor [Unknown]
  - Abdominal pain [Unknown]
  - Anxiety [Unknown]
  - Pyrexia [Unknown]
  - Feeling abnormal [Unknown]

NARRATIVE: CASE EVENT DATE: 20210428
